FAERS Safety Report 21663948 (Version 1)
Quarter: 2022Q4

REPORT INFORMATION
  Report Type: Report from Study
  Country: US (occurrence: US)
  Receive Date: 20221130
  Receipt Date: 20221130
  Transmission Date: 20230113
  Serious: No
  Sender: FDA-Public Use
  Company Number: US-ABBVIE-4194290

PATIENT
  Sex: Female

DRUGS (2)
  1. HUMIRA [Suspect]
     Active Substance: ADALIMUMAB
     Indication: Product used for unknown indication
     Dosage: STRENGTH 40 MG
     Route: 058
  2. INFLUENZA VIRUS VACCINE [Suspect]
     Active Substance: INFLUENZA VIRUS VACCINE
     Indication: Product used for unknown indication
     Dosage: FIRST ADMIN DATE: SEP 2022
     Route: 065

REACTIONS (9)
  - Rhinorrhoea [Not Recovered/Not Resolved]
  - Injection site pain [Not Recovered/Not Resolved]
  - Nasopharyngitis [Not Recovered/Not Resolved]
  - Pain [Not Recovered/Not Resolved]
  - Pain in extremity [Not Recovered/Not Resolved]
  - Cough [Unknown]
  - Feeling abnormal [Unknown]
  - Arthralgia [Not Recovered/Not Resolved]
  - Night sweats [Unknown]

NARRATIVE: CASE EVENT DATE: 20220101
